FAERS Safety Report 8595588-3 (Version None)
Quarter: 2012Q3

REPORT INFORMATION
  Report Type: 
  Country: None (occurrence: None)
  Receive Date: 20120801
  Receipt Date: 20120716
  Transmission Date: 20120928
  Serious: Yes (Disabling, Other)
  Sender: FDA-Public Use
  Company Number: E2B_00000252

PATIENT
  Age: 45 Year
  Sex: Female
  Weight: 74.8435 kg

DRUGS (1)
  1. LEVOFLOXACIN [Suspect]
     Indication: BRONCHITIS
     Dosage: 750 MG (750 MG, 1 IN 1 D), PER ORAL
     Route: 048
     Dates: start: 20120112, end: 20120115

REACTIONS (8)
  - MUSCLE TWITCHING [None]
  - MYOCLONUS [None]
  - INSOMNIA [None]
  - MYOSITIS [None]
  - TENDONITIS [None]
  - ARTHROPATHY [None]
  - MUSCULAR WEAKNESS [None]
  - REFUSAL OF TREATMENT BY PATIENT [None]
